FAERS Safety Report 9281088 (Version 5)
Quarter: 2013Q2

REPORT INFORMATION
  Report Type: Spontaneous
  Country: US (occurrence: US)
  Receive Date: 20130509
  Receipt Date: 20130627
  Transmission Date: 20140414
  Serious: No
  Sender: FDA-Public Use
  Company Number: US-PFIZER INC-2013144482

PATIENT
  Age: 51 Year
  Sex: Female
  Weight: 63.49 kg

DRUGS (4)
  1. LYRICA [Suspect]
     Indication: NEURALGIA
     Dosage: 50 MG, 3X/DAY
     Route: 048
     Dates: start: 201301, end: 201304
  2. LYRICA [Suspect]
     Indication: PAIN
     Dosage: 75 MG, 3X/DAY
  3. CORTISONE [Concomitant]
     Indication: POSTOPERATIVE CARE
     Dosage: UNK
     Dates: start: 201301
  4. LANSOPRAZOLE [Concomitant]
     Dosage: UNK

REACTIONS (1)
  - Pain [Recovered/Resolved]
